FAERS Safety Report 9099619 (Version 1)
Quarter: 2013Q1

REPORT INFORMATION
  Report Type: Spontaneous
  Country: CA (occurrence: CA)
  Receive Date: 20130214
  Receipt Date: 20130214
  Transmission Date: 20140127
  Serious: Yes (Other)
  Sender: FDA-Public Use
  Company Number: PHHY2013CA013782

PATIENT
  Age: 47 Year
  Sex: Male

DRUGS (1)
  1. GLEEVEC [Suspect]
     Indication: SYSTEMIC SCLEROSIS
     Dosage: 200 MG, BID

REACTIONS (5)
  - Urinary retention [Unknown]
  - Fluid retention [Unknown]
  - Muscle spasms [Unknown]
  - Oedema peripheral [Unknown]
  - Scrotal oedema [Unknown]
